FAERS Safety Report 6721792-2 (Version None)
Quarter: 2010Q2

REPORT INFORMATION
  Report Type: 
  Country: None (occurrence: None)
  Receive Date: 20100512
  Receipt Date: 20100503
  Transmission Date: 20101027
  Serious: Yes (Other)
  Sender: FDA-Public Use
  Company Number: DK-ROCHE-700836

PATIENT
  Sex: Female

DRUGS (2)
  1. HERCEPTIN [Suspect]
     Indication: DRUG USE FOR UNKNOWN INDICATION
     Dosage: DRUG WAS STOPPED FOR 3 WEEKS.
     Route: 065
  2. HERCEPTIN [Suspect]
     Route: 065

REACTIONS (1)
  - NEPHROPATHY TOXIC [None]
